FAERS Safety Report 8512166-2 (Version None)
Quarter: 2012Q3

REPORT INFORMATION
  Report Type: 
  Country: None (occurrence: None)
  Receive Date: 20120716
  Receipt Date: 20100107
  Transmission Date: 20120928
  Serious: Yes (Other)
  Sender: FDA-Public Use
  Company Number: US-ROCHE-678892

PATIENT
  Sex: Female
  Weight: 68.2 kg

DRUGS (4)
  1. BEVACIZUMAB [Suspect]
     Indication: AGE-RELATED MACULAR DEGENERATION
     Dosage: UNK
     Route: 031
     Dates: start: 20081101, end: 20091001
  2. ACETAMINOPHEN [Concomitant]
     Indication: PRODUCT USED FOR UNKNOWN INDICATION
  3. RANIBIZUMAB [Suspect]
     Indication: AGE-RELATED MACULAR DEGENERATION
     Dosage: 0.5 MG, 1/MONTH
     Route: 031
  4. IBUPROFEN (ADVIL) [Concomitant]
     Indication: PRODUCT USED FOR UNKNOWN INDICATION
     Dosage: 200 MG, UNK

REACTIONS (4)
  - EYE PAIN [None]
  - ABNORMAL SENSATION IN EYE [None]
  - HEADACHE [None]
  - EYE IRRITATION [None]
